FAERS Safety Report 11320060 (Version 2)
Quarter: 2015Q3

REPORT INFORMATION
  Report Type: Spontaneous
  Country: JP (occurrence: JP)
  Receive Date: 20150729
  Receipt Date: 20150813
  Transmission Date: 20151125
  Serious: Yes (Other)
  Sender: FDA-Public Use
  Company Number: JP-PFIZER INC-2015250098

PATIENT
  Age: 60 Year
  Sex: Female
  Weight: 59 kg

DRUGS (6)
  1. CRAVIT [Concomitant]
     Active Substance: LEVOFLOXACIN
     Dosage: UNK, 4X/DAILY
     Route: 047
     Dates: start: 20150710
  2. VFEND [Suspect]
     Active Substance: VORICONAZOLE
     Dosage: 200 MG, 2X/DAY
     Route: 048
     Dates: start: 20150710, end: 20150724
  3. PIMARICIN [Concomitant]
     Active Substance: NATAMYCIN
     Dosage: UNK, 6X/DAILY
     Route: 047
     Dates: start: 20150710
  4. VFEND [Concomitant]
     Active Substance: VORICONAZOLE
     Dosage: EVERY 2 HOURS
     Route: 047
     Dates: start: 20150710
  5. FLORID F [Concomitant]
     Dosage: EVERY 2 HOURS
     Route: 047
     Dates: start: 20150710
  6. TARIVIT [Concomitant]
     Dosage: UNK, 1X/DAY
     Route: 047
     Dates: start: 20150710

REACTIONS (1)
  - Thrombosis in device [Unknown]

NARRATIVE: CASE EVENT DATE: 20150711
